FAERS Safety Report 9276027 (Version 1)
Quarter: 2013Q2

REPORT INFORMATION
  Report Type: Report from Study
  Country: CA (occurrence: CA)
  Receive Date: 20130507
  Receipt Date: 20130507
  Transmission Date: 20140414
  Serious: Yes (Hospitalization, Other)
  Sender: FDA-Public Use
  Company Number: CA-ABBOTT-13P-028-1084373-00

PATIENT
  Age: 21 Year
  Sex: Female
  Weight: 56.75 kg

DRUGS (3)
  1. HUMIRA [Suspect]
     Indication: CROHN^S DISEASE
     Route: 058
     Dates: start: 20130328, end: 20130425
  2. HUMIRA [Suspect]
     Indication: ABSCESS
  3. AVIANE [Concomitant]
     Indication: CONTRACEPTION
     Route: 048
     Dates: start: 2009

REACTIONS (2)
  - Abscess [Not Recovered/Not Resolved]
  - Crohn^s disease [Not Recovered/Not Resolved]
